FAERS Safety Report 18560379 (Version 1)
Quarter: 2020Q4

REPORT INFORMATION
  Report Type: Report from Study
  Country: CO (occurrence: CO)
  Receive Date: 20201130
  Receipt Date: 20201130
  Transmission Date: 20210114
  Serious: Yes (Disabling)
  Sender: FDA-Public Use
  Company Number: CO-TAKEDA-CO202016979

PATIENT
  Age: 14 Year
  Sex: Male

DRUGS (1)
  1. IDURSULFASE [Suspect]
     Active Substance: IDURSULFASE
     Indication: MUCOPOLYSACCHARIDOSIS II
     Dosage: 14 MILLIGRAM, 1/WEEK
     Route: 042

REACTIONS (5)
  - Pain [Unknown]
  - Inflammation [Unknown]
  - Product dose omission issue [Unknown]
  - Walking disability [Unknown]
  - Malaise [Unknown]

NARRATIVE: CASE EVENT DATE: 20201118
